FAERS Safety Report 22282989 (Version 1)
Quarter: 2023Q2

REPORT INFORMATION
  Report Type: Report from Study
  Country: IE (occurrence: IE)
  Receive Date: 20230504
  Receipt Date: 20230504
  Transmission Date: 20230722
  Serious: Yes (Disabling)
  Sender: FDA-Public Use
  Company Number: IE-002147023-NVSC2022IE196107

PATIENT
  Age: 42 Year
  Sex: Female

DRUGS (1)
  1. MAYZENT [Suspect]
     Active Substance: SIPONIMOD
     Indication: Secondary progressive multiple sclerosis
     Dosage: 1 MG
     Route: 048
     Dates: start: 20220722

REACTIONS (4)
  - Multiple sclerosis relapse [Not Recovered/Not Resolved]
  - Diplegia [Unknown]
  - Diarrhoea [Recovered/Resolved]
  - Back pain [Recovered/Resolved]

NARRATIVE: CASE EVENT DATE: 20220722
